FAERS Safety Report 20010867 (Version 1)
Quarter: 2021Q4

REPORT INFORMATION
  Report Type: Spontaneous
  Country: CA (occurrence: CA)
  Receive Date: 20211028
  Receipt Date: 20211028
  Transmission Date: 20220304
  Serious: Yes (Hospitalization)
  Sender: FDA-Public Use
  Company Number: CA-TEVA-2021-CA-1969715

PATIENT
  Sex: Female
  Weight: 2 kg

DRUGS (4)
  1. QUETIAPINE [Suspect]
     Active Substance: QUETIAPINE
     Dosage: 25 MILLIGRAM DAILY;
     Route: 064
  2. QUETIAPINE [Suspect]
     Active Substance: QUETIAPINE
     Dosage: 300 MILLIGRAM DAILY;
     Route: 064
  3. FLUOXETINE [Suspect]
     Active Substance: FLUOXETINE HYDROCHLORIDE
     Dosage: 80 MILLIGRAM DAILY;
     Route: 064
  4. ASPIRIN [Concomitant]
     Active Substance: ASPIRIN
     Route: 064

REACTIONS (4)
  - Dyskinesia [Recovered/Resolved]
  - Foetal exposure timing unspecified [Recovered/Resolved]
  - Neonatal behavioural syndrome [Recovered/Resolved]
  - Poisoning [Recovered/Resolved]
